FAERS Safety Report 9244930 (Version 1)
Quarter: 2013Q1

REPORT INFORMATION
  Report Type: Spontaneous
  Country: US (occurrence: None)
  Receive Date: 20121130
  Receipt Date: 20121130
  Transmission Date: 20140127
  Serious: Yes (Other)
  Sender: FDA-Public Use
  Company Number: US201209003201

PATIENT
  Age: 45 Year
  Sex: Female

DRUGS (2)
  1. BYDUREON (EXENATIDE LONG ACTING RELEASE 2MG) VIAL + SYRINGE [Suspect]
     Indication: TYPE 2 DIABETES MELLITUS
     Dosage: 1/W
     Route: 058
     Dates: start: 20120815, end: 20120831
  2. BYETTA (EXENATIDE) PEN, DISPOSABLE [Suspect]
     Indication: TYPE 2 DIABETES MELLITUS
     Route: 058
     Dates: start: 20120815, end: 20120831

REACTIONS (2)
  - Swelling face [None]
  - Hypersensitivity [None]
